FAERS Safety Report 4641490-9 (Version None)
Quarter: 2005Q2

REPORT INFORMATION
  Report Type: 
  Country: None (occurrence: None)
  Receive Date: 20050421
  Receipt Date: 20050419
  Transmission Date: 20051028
  Serious: Yes (Hospitalization)
  Sender: FDA-Public Use
  Company Number: 134

PATIENT
  Age: 67 Year
  Sex: Male
  Weight: 115 kg

DRUGS (1)
  1. MELPHALAN [Suspect]
     Indication: MULTIPLE MYELOMA
     Dosage: 400MG SINGLE DOSE
     Route: 042
     Dates: start: 20041122

REACTIONS (1)
  - DEHYDRATION [None]
